FAERS Safety Report 4714970-5 (Version None)
Quarter: 2005Q3

REPORT INFORMATION
  Report Type: 
  Country: None (occurrence: None)
  Receive Date: 20050713
  Receipt Date: 20050630
  Transmission Date: 20060218
  Serious: Yes (Other)
  Sender: FDA-Public Use
  Company Number: 2005087123

PATIENT
  Age: 42 Year
  Sex: Female
  Weight: 68.0396 kg

DRUGS (4)
  1. DEPO-PROVERA [Suspect]
     Indication: CONTRACEPTION
     Dosage: SEE IMAGE
     Route: 030
     Dates: start: 20050425, end: 20050425
  2. DEPO-PROVERA [Suspect]
     Indication: CONTRACEPTION
     Dosage: SEE IMAGE
     Route: 030
     Dates: start: 20050613, end: 20050613
  3. NEXIUM [Concomitant]
  4. LIBRAX [Concomitant]

REACTIONS (12)
  - ABDOMINAL PAIN [None]
  - FATIGUE [None]
  - FUNGAL INFECTION [None]
  - GENITAL PRURITUS FEMALE [None]
  - HAEMORRHAGE [None]
  - HEADACHE [None]
  - HYPOMENORRHOEA [None]
  - INSOMNIA [None]
  - METRORRHAGIA [None]
  - NAUSEA [None]
  - OVARIAN CYST [None]
  - URINARY TRACT INFECTION [None]
